FAERS Safety Report 24666038 (Version 1)
Quarter: 2024Q4

REPORT INFORMATION
  Report Type: Spontaneous
  Country: US (occurrence: US)
  Receive Date: 20241126
  Receipt Date: 20241126
  Transmission Date: 20250115
  Serious: Yes (Other)
  Sender: AMGEN
  Company Number: US-AMGEN-USASP2024231815

PATIENT
  Age: 75 Year
  Sex: Female

DRUGS (2)
  1. RITUXIMAB [Suspect]
     Active Substance: RITUXIMAB
     Indication: Proteinuria
     Dosage: 375 MILLIGRAM/SQ. METER, QWK, 4 DOSES
     Route: 065
  2. RITUXIMAB [Suspect]
     Active Substance: RITUXIMAB
     Dosage: (3 COURSES OVER 3 YEARS)
     Route: 065

REACTIONS (4)
  - Nephrotic syndrome [Unknown]
  - Focal segmental glomerulosclerosis [Unknown]
  - Drug effective for unapproved indication [Unknown]
  - Off label use [Unknown]
